FAERS Safety Report 5320856-8 (Version None)
Quarter: 2007Q2

REPORT INFORMATION
  Report Type: 
  Country: None (occurrence: None)
  Receive Date: 20070503
  Receipt Date: 20070418
  Transmission Date: 20071010
  Serious: Yes (Hospitalization)
  Sender: FDA-Public Use
  Company Number: 2007AD000040

PATIENT
  Age: 73 Year
  Sex: Male

DRUGS (4)
  1. CEPHALEXIN [Suspect]
     Indication: COUGH
  2. CEPHALEXIN [Suspect]
     Indication: HAEMOPTYSIS
  3. CEPHALEXIN [Suspect]
     Indication: PHARYNGOLARYNGEAL PAIN
  4. PROPRANOLOL [Suspect]
     Indication: DRUG USE FOR UNKNOWN INDICATION

REACTIONS (8)
  - ABDOMINAL PAIN UPPER [None]
  - ANAPHYLACTIC REACTION [None]
  - BLOOD PRESSURE IMMEASURABLE [None]
  - CHEST PAIN [None]
  - DYSPNOEA [None]
  - FALL [None]
  - PRURITUS [None]
  - RASH ERYTHEMATOUS [None]
